FAERS Safety Report 25115418 (Version 1)
Quarter: 2025Q1

REPORT INFORMATION
  Report Type: Spontaneous
  Country: CN (occurrence: CN)
  Receive Date: 20250324
  Receipt Date: 20250324
  Transmission Date: 20250409
  Serious: Yes (Other)
  Sender: BAYER HEALTHCARE PHARMACEUTICALS INC.
  Company Number: CN-BAYER-2025A037036

PATIENT
  Age: 56 Year
  Sex: Male

DRUGS (5)
  1. REGORAFENIB [Suspect]
     Active Substance: REGORAFENIB
     Indication: Hepatocellular carcinoma
     Dosage: 1 DF, QD
     Route: 048
     Dates: start: 202401, end: 20240305
  2. REGORAFENIB [Suspect]
     Active Substance: REGORAFENIB
     Indication: Hepatocellular carcinoma
     Dosage: 80 MG, QD
     Route: 048
     Dates: start: 20240312, end: 20240408
  3. REGORAFENIB [Suspect]
     Active Substance: REGORAFENIB
     Indication: Hepatocellular carcinoma
     Dosage: 120 MG, QD
     Route: 048
     Dates: start: 20240416, end: 20240426
  4. SIROLIMUS [Suspect]
     Active Substance: SIROLIMUS
     Indication: Hepatocellular carcinoma
     Dosage: 1 MG, QD
     Dates: start: 2024
  5. MYCOPHENOLATE MOFETIL [Concomitant]
     Active Substance: MYCOPHENOLATE MOFETIL
     Indication: Hepatocellular carcinoma
     Dosage: 250 MG, BID
     Dates: start: 2024

REACTIONS (5)
  - Hepatocellular carcinoma [None]
  - Drug level above therapeutic [Recovered/Resolved]
  - Drug interaction [None]
  - Prescribed underdose [None]
  - Underdose [None]

NARRATIVE: CASE EVENT DATE: 20240101
